FAERS Safety Report 15909915 (Version 1)
Quarter: 2019Q1

REPORT INFORMATION
  Report Type: Spontaneous
  Country: US (occurrence: US)
  Receive Date: 20190204
  Receipt Date: 20190204
  Transmission Date: 20190417
  Serious: No
  Sender: FDA-Public Use
  Company Number: US-ABBVIE-18K-163-2266748-00

PATIENT
  Age: 50 Year
  Sex: Female

DRUGS (4)
  1. XELJANZ XR [Suspect]
     Active Substance: TOFACITINIB CITRATE
     Indication: RHEUMATOID ARTHRITIS
     Route: 048
     Dates: start: 2017, end: 2017
  2. ORENCIA [Suspect]
     Active Substance: ABATACEPT
     Indication: PRODUCT USED FOR UNKNOWN INDICATION
     Route: 065
  3. METHOTREXATE. [Suspect]
     Active Substance: METHOTREXATE
     Indication: PRODUCT USED FOR UNKNOWN INDICATION
     Route: 065
  4. HUMIRA [Suspect]
     Active Substance: ADALIMUMAB
     Indication: PRODUCT USED FOR UNKNOWN INDICATION
     Route: 058

REACTIONS (15)
  - Feeling abnormal [Unknown]
  - Influenza [Unknown]
  - Colour blindness [Unknown]
  - Dry mouth [Unknown]
  - Rash [Unknown]
  - Joint range of motion decreased [Unknown]
  - Foot deformity [Unknown]
  - Hand deformity [Unknown]
  - Immunodeficiency [Unknown]
  - Drug ineffective [Unknown]
  - Feeling of body temperature change [Unknown]
  - Vision blurred [Unknown]
  - Nasopharyngitis [Unknown]
  - Hyperhidrosis [Unknown]
  - Productive cough [Unknown]

NARRATIVE: CASE EVENT DATE: 2017
